FAERS Safety Report 12245391 (Version 3)
Quarter: 2016Q2

REPORT INFORMATION
  Report Type: Spontaneous
  Country: JP (occurrence: JP)
  Receive Date: 20160407
  Receipt Date: 20160428
  Transmission Date: 20160815
  Serious: Yes (Hospitalization)
  Sender: FDA-Public Use
  Company Number: JP-JNJFOC-20160405062

PATIENT
  Age: 66 Year
  Sex: Female
  Weight: 51 kg

DRUGS (2)
  1. CANAGLU [Suspect]
     Active Substance: CANAGLIFLOZIN
     Indication: DIABETES MELLITUS
     Route: 048
     Dates: start: 20140910, end: 20160301
  2. TRELAGLIPTIN [Suspect]
     Active Substance: TRELAGLIPTIN SUCCINATE
     Indication: DIABETES MELLITUS
     Route: 048
     Dates: end: 20160301

REACTIONS (1)
  - Cerebral infarction [Recovered/Resolved]

NARRATIVE: CASE EVENT DATE: 20160301
